FAERS Safety Report 9524621 (Version 1)
Quarter: 2013Q3

REPORT INFORMATION
  Report Type: Other
  Country: GB (occurrence: GB)
  Receive Date: 20130916
  Receipt Date: 20130916
  Transmission Date: 20140515
  Serious: Yes (Death, Other)
  Sender: FDA-Public Use
  Company Number: GB-TARO PHARMACEUTICALS U.S.A., INC-2013SUN04680

PATIENT
  Age: 86 Year
  Sex: Female

DRUGS (7)
  1. WARFARIN [Suspect]
     Indication: ATRIAL FIBRILLATION
     Dosage: 4 MG, UNK
     Route: 048
     Dates: start: 2005, end: 20130113
  2. BENDROFLUAZIDE [Concomitant]
  3. DIGOXIN [Concomitant]
  4. DOXAZOSIN [Concomitant]
  5. PARACETAMOL [Concomitant]
  6. RAMIPRIL [Concomitant]
  7. SIMVASTATIN [Concomitant]

REACTIONS (3)
  - Coagulopathy [Fatal]
  - Circulatory collapse [Not Recovered/Not Resolved]
  - Coma scale abnormal [Not Recovered/Not Resolved]
